FAERS Safety Report 4287459-8 (Version None)
Quarter: 2004Q1

REPORT INFORMATION
  Report Type: 
  Country: None (occurrence: None)
  Receive Date: 20040205
  Receipt Date: 20040116
  Transmission Date: 20041129
  Serious: Yes (Hospitalization, Other)
  Sender: FDA-Public Use
  Company Number: USA031255277

PATIENT
  Age: 56 Year
  Sex: Male
  Weight: 120 kg

DRUGS (9)
  1. FORTEO [Suspect]
     Indication: OSTEOPOROSIS
     Dosage: 20 UG/DAY
     Dates: start: 20021201
  2. PRILOSEC [Concomitant]
  3. LIPITOR [Concomitant]
  4. PRINIVIL [Concomitant]
  5. FLEXERIL [Concomitant]
  6. CALCIUM [Concomitant]
  7. CIALIS ^LILLY^ (TADALAFIL) [Concomitant]
  8. LACTULOSE [Concomitant]
  9. ELIDEL (PIMECROLIMUS) [Concomitant]

REACTIONS (3)
  - FRACTURE [None]
  - INTERVERTEBRAL DISC PROTRUSION [None]
  - SPINAL COLUMN STENOSIS [None]
